FAERS Safety Report 5743443-6 (Version None)
Quarter: 2008Q2

REPORT INFORMATION
  Report Type: 
  Country: None (occurrence: None)
  Receive Date: 20080519
  Receipt Date: 20080519
  Transmission Date: 20081010
  Serious: Yes (Death)
  Sender: FDA-Public Use
  Company Number: None

PATIENT
  Age: 57 Year
  Sex: Male
  Weight: 75.7507 kg

DRUGS (1)
  1. DIGITEK 0.125 MYLAN/BERTEK [Suspect]
     Indication: ARRHYTHMIA
     Dosage: 0.125 ONE TABLET DAILY PO
     Route: 048
     Dates: start: 19970921, end: 20080421

REACTIONS (1)
  - MYOCARDIAL INFARCTION [None]
